FAERS Safety Report 6933214-7 (Version None)
Quarter: 2010Q3

REPORT INFORMATION
  Report Type: 
  Country: None (occurrence: None)
  Receive Date: 20100820
  Receipt Date: 20100816
  Transmission Date: 20110219
  Serious: Yes (Other)
  Sender: FDA-Public Use
  Company Number: US-ASTRAZENECA-2007UW19310

PATIENT
  Age: 20293 Day
  Sex: Female
  Weight: 125.6 kg

DRUGS (16)
  1. SEROQUEL [Suspect]
     Indication: BIPOLAR DISORDER
     Route: 048
     Dates: start: 20041210, end: 20080222
  2. SEROQUEL [Suspect]
     Indication: DEPRESSION
     Route: 048
     Dates: start: 20041210, end: 20080222
  3. SEROQUEL [Suspect]
     Route: 048
     Dates: start: 20050211
  4. SEROQUEL [Suspect]
     Route: 048
     Dates: start: 20050211
  5. DILANTIN [Concomitant]
     Route: 048
     Dates: start: 20040220
  6. LIPITOR [Concomitant]
     Route: 048
     Dates: start: 20061023
  7. METOPROLOL TARTRATE [Concomitant]
     Route: 048
     Dates: start: 20070518
  8. GEODON [Concomitant]
     Route: 048
     Dates: end: 20071211
  9. FLUCONAZOLE [Concomitant]
     Route: 048
     Dates: end: 20071211
  10. NORVASC [Concomitant]
     Route: 048
     Dates: start: 20040225
  11. HYDROCHLOROTHIAZIDE [Concomitant]
     Route: 048
     Dates: start: 20020929
  12. ADVAIR DISKUS 100/50 [Concomitant]
     Route: 045
     Dates: start: 20050313
  13. ZOLOFT [Concomitant]
     Dosage: 50-100 MG
     Dates: start: 20040101
  14. ZOLOFT [Concomitant]
     Route: 048
     Dates: start: 20040225
  15. PREMARIN [Concomitant]
     Route: 048
     Dates: start: 20020926
  16. PLENDIL [Concomitant]
     Route: 048
     Dates: start: 20020926

REACTIONS (8)
  - BLOOD CHOLESTEROL INCREASED [None]
  - DIABETIC RETINOPATHY [None]
  - GLUCOSE TOLERANCE IMPAIRED [None]
  - HYPERLIPIDAEMIA [None]
  - IMPAIRED FASTING GLUCOSE [None]
  - NEUROPATHY PERIPHERAL [None]
  - OBESITY [None]
  - TYPE 2 DIABETES MELLITUS [None]
